FAERS Safety Report 15091267 (Version 1)
Quarter: 2018Q2

REPORT INFORMATION
  Report Type: Spontaneous
  Country: US (occurrence: US)
  Receive Date: 20180629
  Receipt Date: 20180629
  Transmission Date: 20180711
  Serious: No
  Sender: FDA-Public Use
  Company Number: US-AMGEN-USASP2015064583

PATIENT
  Age: 66 Year
  Sex: Female

DRUGS (1)
  1. PROLIA [Suspect]
     Active Substance: DENOSUMAB
     Indication: PRODUCT USED FOR UNKNOWN INDICATION
     Dosage: UNK UNK, Q6MO
     Route: 065

REACTIONS (14)
  - Musculoskeletal stiffness [Recovered/Resolved]
  - Alopecia [Unknown]
  - Neck pain [Not Recovered/Not Resolved]
  - Arthralgia [Unknown]
  - Adverse drug reaction [Unknown]
  - Pain in extremity [Not Recovered/Not Resolved]
  - Fatigue [Unknown]
  - Cystitis [Unknown]
  - Chest pain [Unknown]
  - Musculoskeletal pain [Not Recovered/Not Resolved]
  - Device issue [Unknown]
  - Vertigo [Unknown]
  - Musculoskeletal discomfort [Unknown]
  - Insomnia [Unknown]

NARRATIVE: CASE EVENT DATE: 2015
